FAERS Safety Report 5259042-9 (Version None)
Quarter: 2007Q1

REPORT INFORMATION
  Report Type: 
  Country: None (occurrence: None)
  Receive Date: 20070308
  Receipt Date: 20070226
  Transmission Date: 20070707
  Serious: Yes (Hospitalization)
  Sender: FDA-Public Use
  Company Number: US-PFIZER INC-2006147388

PATIENT
  Sex: Female
  Weight: 58.2 kg

DRUGS (5)
  1. PREGABALIN [Suspect]
     Indication: ABDOMINAL PAIN
     Route: 048
     Dates: start: 20061108, end: 20061128
  2. SYNTHROID [Concomitant]
  3. PREMARIN [Concomitant]
  4. EFFEXOR [Concomitant]
  5. ULTRAM [Concomitant]

REACTIONS (2)
  - INTENTIONAL OVERDOSE [None]
  - SUICIDE ATTEMPT [None]
